FAERS Safety Report 4643490-1 (Version None)
Quarter: 2005Q2

REPORT INFORMATION
  Report Type: 
  Country: None (occurrence: None)
  Receive Date: 20050328
  Receipt Date: 20040819
  Transmission Date: 20051028
  Serious: Yes (Other)
  Sender: FDA-Public Use
  Company Number: PHEH2004US09033

PATIENT
  Sex: Female

DRUGS (3)
  1. VIVELLE-DOT [Suspect]
     Indication: HORMONE REPLACEMENT THERAPY
     Dosage: 0.1 MG, TWICE WEEKLY, TRANSDERMAL
     Route: 062
     Dates: start: 20040301, end: 20040802
  2. PAXIL [Concomitant]
  3. PROMETRIUM [Concomitant]

REACTIONS (4)
  - ENDOMETRIAL CANCER [None]
  - ENDOMETRIAL HYPERPLASIA [None]
  - HOT FLUSH [None]
  - UTERINE DILATION AND CURETTAGE [None]
